FAERS Safety Report 21340634 (Version 1)
Quarter: 2022Q3

REPORT INFORMATION
  Report Type: Spontaneous
  Country: US (occurrence: US)
  Receive Date: 20220916
  Receipt Date: 20220916
  Transmission Date: 20221026
  Serious: Yes (Other)
  Sender: FDA-Public Use
  Company Number: US-SA-SAC20220913001495

PATIENT
  Age: 35 Year
  Sex: Male

DRUGS (1)
  1. CABLIVI [Suspect]
     Active Substance: CAPLACIZUMAB-YHDP
     Indication: Thrombotic microangiopathy
     Dosage: 11 MG
     Route: 058
     Dates: start: 20191224

REACTIONS (14)
  - Haemorrhage [Unknown]
  - Iron deficiency [Unknown]
  - Chronic disease [Unknown]
  - Normochromic normocytic anaemia [Unknown]
  - Neoplasm [Unknown]
  - Inflammation [Unknown]
  - Haemoglobin decreased [Unknown]
  - Haematocrit decreased [Unknown]
  - Blood urea increased [Unknown]
  - Blood creatinine increased [Unknown]
  - Glomerular filtration rate decreased [Unknown]
  - Blood 25-hydroxycholecalciferol decreased [Unknown]
  - Red blood cell count abnormal [Unknown]
  - Product use in unapproved indication [Unknown]

NARRATIVE: CASE EVENT DATE: 20191224
